FAERS Safety Report 4672719-9 (Version None)
Quarter: 2005Q2

REPORT INFORMATION
  Report Type: 
  Country: None (occurrence: None)
  Receive Date: 20050524
  Receipt Date: 20050517
  Transmission Date: 20051028
  Serious: Yes (Other)
  Sender: FDA-Public Use
  Company Number: US-BRISTOL-MYERS SQUIBB COMPANY-12972956

PATIENT
  Sex: Female

DRUGS (2)
  1. ERBITUX [Suspect]
     Dosage: FIRST DOSE, OVER 1 HOUR
     Route: 042
  2. DIPHENHYDRAMINE HCL [Concomitant]
     Indication: PREMEDICATION

REACTIONS (1)
  - CHEST DISCOMFORT [None]
